FAERS Safety Report 7060852-6 (Version None)
Quarter: 2010Q4

REPORT INFORMATION
  Report Type: 
  Country: None (occurrence: None)
  Receive Date: 20101025
  Receipt Date: 20101011
  Transmission Date: 20110411
  Serious: Yes (Hospitalization)
  Sender: FDA-Public Use
  Company Number: US-ELI_LILLY_AND_COMPANY-US201009005658

PATIENT
  Sex: Female

DRUGS (16)
  1. FORTEO [Suspect]
     Indication: OSTEOPOROSIS
     Dosage: 20 UG, DAILY (1/D)
  2. PREDNISONE [Concomitant]
     Dosage: 14 MG, UNK
  3. PREDNISONE [Concomitant]
     Dosage: 30 MG, UNK
  4. NEURONTIN [Concomitant]
  5. PLAVIX [Concomitant]
  6. OXYCODONE [Concomitant]
  7. TOPROL-XL [Concomitant]
  8. FOLIC ACID [Concomitant]
  9. PROTONIX [Concomitant]
  10. PROZAC [Concomitant]
  11. ARICEPT [Concomitant]
  12. ISOSORBIDE DINITRATE [Concomitant]
  13. ASPIRIN [Concomitant]
     Dosage: 81 MG, UNK
  14. LIPITOR [Concomitant]
  15. COZAAR [Concomitant]
  16. AMBIEN [Concomitant]

REACTIONS (14)
  - APHAGIA [None]
  - ASTHENIA [None]
  - CHEST DISCOMFORT [None]
  - COMPUTERISED TOMOGRAM ABNORMAL [None]
  - DEHYDRATION [None]
  - DYSPNOEA EXERTIONAL [None]
  - ELECTROCARDIOGRAM ABNORMAL [None]
  - FATIGUE [None]
  - FLUID INTAKE REDUCED [None]
  - HEART RATE IRREGULAR [None]
  - HYPOPHAGIA [None]
  - LUNG DISORDER [None]
  - MALAISE [None]
  - PALPITATIONS [None]
